FAERS Safety Report 13968577 (Version 1)
Quarter: 2017Q3

REPORT INFORMATION
  Report Type: Spontaneous
  Country: US (occurrence: US)
  Receive Date: 20170914
  Receipt Date: 20170914
  Transmission Date: 20171128
  Serious: Yes (Life-Threatening, Hospitalization, Other)
  Sender: FDA-Public Use
  Company Number: US-WEST-WARD PHARMACEUTICALS CORP.-US-H14001-17-03408

PATIENT
  Age: 23 Year
  Sex: Female

DRUGS (2)
  1. CIPROFLOXACIN. [Suspect]
     Active Substance: CIPROFLOXACIN
     Indication: CELLULITIS
     Route: 048
  2. CIPROFLOXACIN. [Suspect]
     Active Substance: CIPROFLOXACIN
     Indication: PSEUDOMONAS INFECTION

REACTIONS (5)
  - Condition aggravated [Recovered/Resolved]
  - Pathogen resistance [Recovered/Resolved]
  - Cellulitis [Recovered/Resolved]
  - Septic shock [Recovered/Resolved]
  - Pseudomonas infection [Recovered/Resolved]
